FAERS Safety Report 8389949-5 (Version None)
Quarter: 2012Q2

REPORT INFORMATION
  Report Type: 
  Country: None (occurrence: None)
  Receive Date: 20120529
  Receipt Date: 20120524
  Transmission Date: 20120825
  Serious: No
  Sender: FDA-Public Use
  Company Number: US-PFIZER INC-2012126653

PATIENT
  Sex: Male

DRUGS (1)
  1. ALPRAZOLAM [Suspect]
     Indication: ANXIETY
     Dosage: UNK

REACTIONS (4)
  - PANIC ATTACK [None]
  - RESPIRATORY RATE INCREASED [None]
  - ANXIETY [None]
  - HEART RATE INCREASED [None]
